FAERS Safety Report 8996336 (Version 1)
Quarter: 2013Q1

REPORT INFORMATION
  Report Type: Spontaneous
  Country: US (occurrence: US)
  Receive Date: 20130104
  Receipt Date: 20130104
  Transmission Date: 20140127
  Serious: No
  Sender: FDA-Public Use
  Company Number: US-009507513-1301USA001067

PATIENT
  Sex: Female

DRUGS (4)
  1. DULERA [Suspect]
     Indication: ASTHMA
     Dosage: 200 MCG/100 MCG, 2 DF, BID
     Route: 055
     Dates: start: 20121202
  2. NASONEX [Suspect]
  3. AMOXICILLIN [Concomitant]
  4. LOSARTAN POTASSIUM [Concomitant]

REACTIONS (2)
  - Cough [Not Recovered/Not Resolved]
  - Product quality issue [Unknown]
